FAERS Safety Report 6582479-2 (Version None)
Quarter: 2010Q1

REPORT INFORMATION
  Report Type: 
  Country: None (occurrence: None)
  Receive Date: 20100216
  Receipt Date: 20100208
  Transmission Date: 20100710
  Serious: Yes (Death)
  Sender: FDA-Public Use
  Company Number: PHEH2009US18880

PATIENT
  Sex: Male

DRUGS (3)
  1. TOBI [Suspect]
     Indication: CYSTIC FIBROSIS
     Dosage: 300 MG, BID
  2. MULTIPLE NEBULIZERS [Concomitant]
  3. MULTIPLE ORAL [Suspect]

REACTIONS (4)
  - ARTERIAL HAEMORRHAGE [None]
  - BRONCHIECTASIS [None]
  - HAEMOPTYSIS [None]
  - SHOCK [None]
